FAERS Safety Report 9262906 (Version 2)
Quarter: 2013Q2

REPORT INFORMATION
  Report Type: Spontaneous
  Country: IT (occurrence: IT)
  Receive Date: 20130430
  Receipt Date: 20130503
  Transmission Date: 20140414
  Serious: Yes (Other)
  Sender: FDA-Public Use
  Company Number: IT-PFIZER INC-2013132415

PATIENT
  Age: 46 Year
  Sex: Female

DRUGS (2)
  1. CISPLATIN [Suspect]
     Indication: LUNG ADENOCARCINOMA STAGE I
     Dosage: UNK
     Dates: start: 201206
  2. PEMETREXED [Suspect]
     Indication: LUNG ADENOCARCINOMA STAGE I
     Dosage: UNK
     Dates: start: 201206

REACTIONS (3)
  - Pericardial effusion [Unknown]
  - Disease progression [Unknown]
  - Lung adenocarcinoma stage I [Unknown]
